FAERS Safety Report 20355082 (Version 1)
Quarter: 2022Q1

REPORT INFORMATION
  Report Type: Spontaneous
  Country: JP (occurrence: JP)
  Receive Date: 20220120
  Receipt Date: 20220120
  Transmission Date: 20220423
  Serious: Yes (Hospitalization, Other)
  Sender: FDA-Public Use
  Company Number: JP-GLAXOSMITHKLINE-JP2022JPN007583

PATIENT
  Age: 72 Year
  Sex: Female
  Weight: 50.3 kg

DRUGS (12)
  1. LAMICTAL [Suspect]
     Active Substance: LAMOTRIGINE
     Indication: Epilepsy
     Dosage: 25 MG, QD
     Route: 048
     Dates: start: 20210712, end: 20210712
  2. LAMICTAL [Suspect]
     Active Substance: LAMOTRIGINE
     Dosage: 50 MG, QD
     Route: 048
     Dates: start: 20210713, end: 20210726
  3. LAMICTAL [Suspect]
     Active Substance: LAMOTRIGINE
     Dosage: 50 MG, BID
     Route: 048
     Dates: start: 20210727, end: 20210814
  4. LEVETIRACETAM [Suspect]
     Active Substance: LEVETIRACETAM
     Indication: Epilepsy
     Dosage: 500 MG, BID
     Route: 048
     Dates: start: 20210709, end: 20210726
  5. LEVETIRACETAM [Suspect]
     Active Substance: LEVETIRACETAM
     Dosage: 500 MG, QD
     Route: 048
     Dates: start: 20210727, end: 20210814
  6. E KEPPRA FOR INTRAVENOUS INFUSION [Concomitant]
     Dosage: UNK
     Route: 041
     Dates: start: 20210707, end: 20210708
  7. E KEPPRA FOR INTRAVENOUS INFUSION [Concomitant]
     Dosage: UNK
     Route: 041
     Dates: start: 20210814, end: 20210816
  8. DIAZEPAM [Concomitant]
     Active Substance: DIAZEPAM
     Indication: Seizure
     Dosage: UNK
     Dates: start: 20210707
  9. PHENYTOIN SODIUM [Concomitant]
     Active Substance: PHENYTOIN SODIUM
     Indication: Seizure
     Dosage: UNK
     Dates: start: 20210707
  10. LANSOPRAZOLE-OD TABLETS [Concomitant]
     Dosage: UNK
     Dates: start: 20210709
  11. BIOFERMIN-R POWDER [Concomitant]
     Dosage: UNK
     Dates: start: 20210720, end: 20210814
  12. FLUNITRAZEPAM [Concomitant]
     Active Substance: FLUNITRAZEPAM
     Dosage: UNK
     Dates: end: 20210813

REACTIONS (3)
  - Erythema multiforme [Recovered/Resolved]
  - Pyrexia [Unknown]
  - Product use issue [Unknown]

NARRATIVE: CASE EVENT DATE: 20210807
